FAERS Safety Report 25149872 (Version 2)
Quarter: 2025Q2

REPORT INFORMATION
  Report Type: Spontaneous
  Country: DE (occurrence: DE)
  Receive Date: 20250402
  Receipt Date: 20250627
  Transmission Date: 20250716
  Serious: Yes (Other)
  Sender: AMGEN
  Company Number: DE-002147023-NVSC2025DE052808

PATIENT

DRUGS (1)
  1. AIMOVIG [Suspect]
     Active Substance: ERENUMAB-AOOE
     Indication: Product used for unknown indication
     Route: 065

REACTIONS (1)
  - Hypertensive crisis [Unknown]
